FAERS Safety Report 8951005 (Version 1)
Quarter: 2012Q4

REPORT INFORMATION
  Report Type: Report from Study
  Country: GB (occurrence: GB)
  Receive Date: 20121207
  Receipt Date: 20121207
  Transmission Date: 20130627
  Serious: Yes (Death)
  Sender: FDA-Public Use
  Company Number: GB-BAYER-2012-125327

PATIENT

DRUGS (8)
  1. DACARBAZINE [Suspect]
     Indication: HODGKIN^S LYMPHOMA
  2. BLEOMYCIN [Suspect]
     Indication: HODGKIN^S LYMPHOMA
  3. VINBLASTINE [Suspect]
     Indication: HODGKIN^S LYMPHOMA
  4. DOXORUBICIN [Suspect]
     Indication: HODGKIN^S LYMPHOMA
  5. FLUCONAZOLE [Concomitant]
     Indication: OPPORTUNISTIC INFECTION PROPHYLAXIS
  6. ACYCLOVIR [ACICLOVIR] [Concomitant]
     Indication: OPPORTUNISTIC INFECTION PROPHYLAXIS
  7. AZITHROMYCIN [Concomitant]
     Indication: OPPORTUNISTIC INFECTION PROPHYLAXIS
  8. ANTIBIOTICS [Concomitant]
     Indication: PNEUMOCYSTIS JIROVECI PROPHYLAXIS

REACTIONS (1)
  - Neutropenic sepsis [Fatal]
